FAERS Safety Report 9675763 (Version 2)
Quarter: 2013Q4

REPORT INFORMATION
  Report Type: Spontaneous
  Country: US (occurrence: US)
  Receive Date: 20131107
  Receipt Date: 20131216
  Transmission Date: 20140711
  Serious: Yes (Life-Threatening, Congenital Anomaly, Other)
  Sender: FDA-Public Use
  Company Number: US-PFIZER INC-2013316125

PATIENT
  Sex: Male

DRUGS (5)
  1. ZOLOFT [Suspect]
     Dosage: UNK
     Route: 064
     Dates: start: 200605, end: 200612
  2. SERTRALINE HCL [Suspect]
     Dosage: UNK
     Route: 064
     Dates: start: 200605, end: 200612
  3. TYLENOL [Concomitant]
     Dosage: UNK
     Route: 064
  4. IRON [Concomitant]
     Dosage: UNK
     Route: 064
  5. PRENATAL VITAMINS [Concomitant]
     Dosage: UNK
     Route: 064

REACTIONS (7)
  - Maternal exposure during pregnancy [Unknown]
  - Congenital anomaly [Unknown]
  - Exomphalos [Unknown]
  - Truncus arteriosus persistent [Unknown]
  - Interruption of aortic arch [Unknown]
  - Atrial septal defect [Unknown]
  - Premature baby [Unknown]
